FAERS Safety Report 10555412 (Version 5)
Quarter: 2015Q1

REPORT INFORMATION
  Report Type: Report from Study
  Country: AU (occurrence: AU)
  Receive Date: 20141030
  Receipt Date: 20150219
  Transmission Date: 20150720
  Serious: Yes (Death, Other)
  Sender: FDA-Public Use
  Company Number: AU-GLAXOSMITHKLINE-AU2014GSK008630

PATIENT
  Age: 68 Year
  Sex: Male
  Weight: 78 kg

DRUGS (39)
  1. TEGRETOL [Concomitant]
     Active Substance: CARBAMAZEPINE
  2. CLEXANE [Concomitant]
     Active Substance: ENOXAPARIN SODIUM
  3. PANTOPRAZOLE [Concomitant]
     Active Substance: PANTOPRAZOLE SODIUM
  4. MORPHINE [Concomitant]
     Active Substance: MORPHINE
  5. FISH OIL [Concomitant]
     Active Substance: FISH OIL
  6. ATORVASTATINE [Concomitant]
     Active Substance: ATORVASTATIN
  7. MOVICOL [Concomitant]
     Active Substance: POLYETHYLENE GLYCOL 3350\POTASSIUM CHLORIDE\SODIUM BICARBONATE\SODIUM CHLORIDE
  8. NILSTAT [Concomitant]
     Active Substance: NYSTATIN
  9. FENTANYL. [Concomitant]
     Active Substance: FENTANYL
  10. BUSCOPAN [Concomitant]
     Active Substance: BUTYLSCOPOLAMINE BROMIDE
  11. RISPERIDONE. [Concomitant]
     Active Substance: RISPERIDONE
  12. SENNA [Concomitant]
     Active Substance: SENNA LEAF\SENNOSIDES\SENNOSIDES A AND B
  13. FRUSEMIDE [Concomitant]
     Active Substance: FUROSEMIDE
  14. MULTIVITAMIN [Concomitant]
     Active Substance: VITAMINS
  15. DEXTROSE. [Concomitant]
     Active Substance: DEXTROSE
  16. LINCOMYCIN [Concomitant]
     Active Substance: LINCOMYCIN
  17. RETIGABINE [Suspect]
     Active Substance: EZOGABINE
     Indication: EPILEPSY
     Dosage: UNK
     Dates: start: 20060705, end: 20140824
  18. LYRICA [Concomitant]
     Active Substance: PREGABALIN
  19. CHLORVESCENT [Concomitant]
     Active Substance: POTASSIUM CHLORIDE
  20. HALOPERIDOL. [Concomitant]
     Active Substance: HALOPERIDOL
  21. DOMPERIDONE [Concomitant]
     Active Substance: DOMPERIDONE
  22. BENZYLPENICILLIN SODIUM + PROCAINE PENICILLIN [Concomitant]
  23. COVERSYL [Concomitant]
     Active Substance: PERINDOPRIL
  24. PANADEINE FORTE [Concomitant]
     Active Substance: ACETAMINOPHEN\CODEINE PHOSPHATE
  25. WARFARIN [Concomitant]
     Active Substance: WARFARIN
  26. BISOPROLOL [Concomitant]
     Active Substance: BISOPROLOL
  27. PARACETAMOL [Concomitant]
     Active Substance: ACETAMINOPHEN
  28. AMPICILLIN [Concomitant]
     Active Substance: AMPICILLIN
  29. ACICLOVIR [Concomitant]
     Active Substance: ACYCLOVIR
  30. DOCUSATE [Concomitant]
     Active Substance: DOCUSATE
  31. CEFTRIAXONE. [Concomitant]
     Active Substance: CEFTRIAXONE
  32. GENTAMYCIN [Concomitant]
     Active Substance: GENTAMICIN
  33. PERINDOPRIL [Concomitant]
     Active Substance: PERINDOPRIL
  34. POTASSIUM CHLORIDE. [Concomitant]
     Active Substance: POTASSIUM CHLORIDE
  35. DIGOXIN. [Concomitant]
     Active Substance: DIGOXIN
  36. TRITACE [Concomitant]
     Active Substance: RAMIPRIL
  37. DOXYCYCLINE. [Concomitant]
     Active Substance: DOXYCYCLINE
  38. LIPEX [Concomitant]
     Active Substance: SIMVASTATIN
  39. LASIX [Concomitant]
     Active Substance: FUROSEMIDE

REACTIONS (2)
  - Septic shock [Fatal]
  - Cellulitis [Fatal]

NARRATIVE: CASE EVENT DATE: 20140824
